FAERS Safety Report 9105759 (Version 5)
Quarter: 2013Q4

REPORT INFORMATION
  Report Type: Spontaneous
  Country: NO (occurrence: NO)
  Receive Date: 20130220
  Receipt Date: 20131023
  Transmission Date: 20140711
  Serious: Yes (Hospitalization, Disabling, Other)
  Sender: FDA-Public Use
  Company Number: NO-PFIZER INC-2010120171

PATIENT
  Age: 72 Year
  Sex: Female

DRUGS (12)
  1. ZYVOXID [Suspect]
     Indication: STAPHYLOCOCCAL INFECTION
     Dosage: 600 MG, 2X/DAY
     Route: 048
     Dates: start: 201007, end: 20100723
  2. ZYVOXID [Suspect]
     Dosage: 600 MG, 2X/DAY
     Route: 048
     Dates: start: 20100803, end: 20100928
  3. LIPITOR [Concomitant]
     Dosage: 40 MG, 1X/DAY
     Route: 048
  4. PREDNISOLONE [Concomitant]
     Indication: POLYMYALGIA RHEUMATICA
     Dosage: VARIABLE DOSE FROM 20 - 7,5 MG DAILY.
     Route: 048
     Dates: start: 201002
  5. CARVEDILOL [Concomitant]
     Dosage: 25 MG MORNING, 12,5 MG NIGHT.
     Route: 048
  6. AMLODIPINE [Concomitant]
     Dosage: 5 MG, 1X/DAY
     Route: 048
  7. PRADAXA [Concomitant]
     Dosage: 110 MG, 2X/DAY
     Route: 048
  8. ALBYL-E [Concomitant]
     Dosage: 75 MG, 1X/DAY
     Route: 048
  9. VANCOMYCIN [Concomitant]
     Dosage: 1 G, 2X/DAY
     Route: 042
     Dates: start: 20100827, end: 20100901
  10. MICARDISPLUS [Concomitant]
     Dosage: 1 DF, 1X/DAY
     Route: 048
  11. MAREVAN [Concomitant]
     Dosage: DOSE BASED ON INR MEASUREMENTS
     Route: 048
     Dates: end: 20100827
  12. NEXIUM [Concomitant]
     Dosage: 20 MG, 1X/DAY
     Route: 048

REACTIONS (7)
  - Polyneuropathy [Recovering/Resolving]
  - Malaise [Not Recovered/Not Resolved]
  - Anaemia [Recovered/Resolved]
  - Fatigue [Unknown]
  - Blood lactic acid increased [Recovered/Resolved]
  - Nausea [Not Recovered/Not Resolved]
  - Alopecia [Unknown]
